FAERS Safety Report 9910043 (Version 1)
Quarter: 2014Q1

REPORT INFORMATION
  Report Type: Spontaneous
  Country: US (occurrence: None)
  Receive Date: 20140218
  Receipt Date: 20140218
  Transmission Date: 20141002
  Serious: Yes (Other)
  Sender: FDA-Public Use
  Company Number: None

PATIENT
  Age: 41 Year
  Sex: Female
  Weight: 81.65 kg

DRUGS (1)
  1. DURAGESIC [Suspect]
     Indication: BACK PAIN
     Dosage: 10 PATCHES (2 BOXES OF 5 PATCH ?EVERY 72 HOURS?APPLIED AS MEDICATED PATCH TO SKIN
     Dates: start: 20140201, end: 20140210

REACTIONS (11)
  - Overdose [None]
  - Nausea [None]
  - Vomiting [None]
  - Pruritus [None]
  - Psychomotor hyperactivity [None]
  - Euphoric mood [None]
  - Malaise [None]
  - Product packaging issue [None]
  - Product adhesion issue [None]
  - Product quality issue [None]
  - Product substitution issue [None]
